FAERS Safety Report 14297452 (Version 2)
Quarter: 2019Q4

REPORT INFORMATION
  Report Type: Report from Study
  Country: US (occurrence: US)
  Receive Date: 20171218
  Receipt Date: 20191204
  Transmission Date: 20200122
  Serious: Yes (Other)
  Sender: FDA-Public Use
  Company Number: US-TEVA-802673USA

PATIENT
  Age: 42 Year
  Sex: Female

DRUGS (2)
  1. XENAZINE [Concomitant]
     Active Substance: TETRABENAZINE
     Indication: HUNTINGTON^S DISEASE
     Dosage: 25 MILLIGRAM DAILY;
     Route: 065
     Dates: start: 2012, end: 20170727
  2. AUSTEDO [Suspect]
     Active Substance: DEUTETRABENAZINE
     Indication: HUNTINGTON^S DISEASE
     Dosage: 12 MILLIGRAM DAILY;
     Route: 065
     Dates: start: 20170727, end: 20170825

REACTIONS (11)
  - Suicidal ideation [Recovered/Resolved]
  - Fall [Unknown]
  - Pain [Unknown]
  - Drug ineffective [Unknown]
  - Depression [Unknown]
  - Neck pain [Unknown]
  - Back pain [Unknown]
  - Contraindicated product administered [Unknown]
  - Dyskinesia [Unknown]
  - Obsessive-compulsive disorder [Unknown]
  - Agitation [Unknown]

NARRATIVE: CASE EVENT DATE: 2017
